FAERS Safety Report 26134683 (Version 1)
Quarter: 2025Q4

REPORT INFORMATION
  Report Type: Spontaneous
  Country: US (occurrence: US)
  Receive Date: 20251209
  Receipt Date: 20251209
  Transmission Date: 20260117
  Serious: Yes (Hospitalization)
  Sender: GERON CORP
  Company Number: US-GERON CORPORATION-US-GER-25-000267

PATIENT

DRUGS (1)
  1. RYTELO [Suspect]
     Active Substance: IMETELSTAT SODIUM
     Indication: Product used for unknown indication
     Dosage: UNK MILLIGRAM/KILOGRAM
     Route: 042
     Dates: end: 202511

REACTIONS (1)
  - Infection [Unknown]
